FAERS Safety Report 5011808-6 (Version None)
Quarter: 2006Q2

REPORT INFORMATION
  Report Type: 
  Country: None (occurrence: None)
  Receive Date: 20060526
  Receipt Date: 20050713
  Transmission Date: 20061013
  Serious: Yes (Other)
  Sender: FDA-Public Use
  Company Number: 05-06-1107

PATIENT
  Age: 14 Year
  Sex: Male

DRUGS (2)
  1. THORAZINE [Suspect]
     Indication: DRUG USE FOR UNKNOWN INDICATION
     Route: 065
  2. CLOZAPINE [Suspect]
     Indication: SCHIZOAFFECTIVE DISORDER
     Route: 048
     Dates: start: 20040101, end: 20050601

REACTIONS (2)
  - CONSTIPATION [None]
  - GRANULOCYTOPENIA [None]
